FAERS Safety Report 12266509 (Version 2)
Quarter: 2016Q2

REPORT INFORMATION
  Report Type: Spontaneous
  Country: US (occurrence: US)
  Receive Date: 20160414
  Receipt Date: 20160510
  Transmission Date: 20160815
  Serious: No
  Sender: FDA-Public Use
  Company Number: US-009507513-1604USA002061

PATIENT
  Age: 51 Year
  Sex: Female
  Weight: 83.9 kg

DRUGS (7)
  1. FAMOTIDINE. [Concomitant]
     Active Substance: FAMOTIDINE
     Indication: ANTIEMETIC SUPPORTIVE CARE
     Dosage: TOTAL DAILY DOSE 20 MG
     Route: 041
     Dates: start: 20160321, end: 20160321
  2. ALOXI [Concomitant]
     Active Substance: PALONOSETRON HYDROCHLORIDE
     Indication: ANTIEMETIC SUPPORTIVE CARE
     Dosage: TOTAL DAILY DOSE 0.25 MG
     Route: 041
     Dates: start: 20160321, end: 20160321
  3. EMEND [Suspect]
     Active Substance: APREPITANT
     Indication: PROPHYLAXIS OF NAUSEA AND VOMITING
     Dosage: TOTAL DAILY DOSE 150 MG
     Route: 042
     Dates: start: 20160321, end: 20160321
  4. EMEND [Suspect]
     Active Substance: APREPITANT
     Dosage: TOTAL DAILY DOSE 150 MG
     Route: 042
     Dates: start: 20160321, end: 20160321
  5. DEXAMETHASONE. [Concomitant]
     Active Substance: DEXAMETHASONE
     Indication: ANTIEMETIC SUPPORTIVE CARE
     Dosage: TOTAL DAILY DOSE 10 MG
     Route: 041
     Dates: start: 20160321, end: 20160321
  6. CISPLATIN. [Concomitant]
     Active Substance: CISPLATIN
     Dosage: UNK
  7. GEMZAR [Concomitant]
     Active Substance: GEMCITABINE HYDROCHLORIDE
     Indication: NEOPLASM MALIGNANT
     Dosage: TOTAL DAILY DOSE 200MG
     Route: 041
     Dates: start: 20160321, end: 20160321

REACTIONS (2)
  - Product preparation error [Unknown]
  - Infusion site pain [Recovered/Resolved]

NARRATIVE: CASE EVENT DATE: 20160321
